FAERS Safety Report 4728049-X (Version None)
Quarter: 2005Q3

REPORT INFORMATION
  Report Type: 
  Country: None (occurrence: None)
  Receive Date: 20050721
  Receipt Date: 20050527
  Transmission Date: 20060218
  Serious: No
  Sender: FDA-Public Use
  Company Number: 2005SP001075

PATIENT
  Age: 50 Year
  Sex: Female
  Weight: 65.7716 kg

DRUGS (7)
  1. LUNESTA [Suspect]
     Indication: INSOMNIA
     Dosage: 3 MG;HS;ORAL
     Route: 048
     Dates: start: 20050523, end: 20050523
  2. CLONIDINE [Concomitant]
  3. HYDROCHLOROTHIAZIDE [Concomitant]
  4. COZAAR [Concomitant]
  5. ATENOLOL [Concomitant]
  6. POTASSIUM CHLORIDE [Concomitant]
  7. ESTROGENS CONJUGATED [Concomitant]

REACTIONS (1)
  - DYSGEUSIA [None]
